FAERS Safety Report 11491960 (Version 1)
Quarter: 2015Q3

REPORT INFORMATION
  Report Type: Spontaneous
  Country: AU (occurrence: JP)
  Receive Date: 20150910
  Receipt Date: 20150910
  Transmission Date: 20151125
  Serious: Yes (Other)
  Sender: FDA-Public Use
  Company Number: AU-BAYER-2015-418402

PATIENT
  Age: 9 Year
  Sex: Male

DRUGS (4)
  1. RISPERIDONE. [Suspect]
     Active Substance: RISPERIDONE
  2. ACETYLSALICYLIC ACID({=100 MG) [Suspect]
     Active Substance: ASPIRIN
  3. VALPROIC ACID. [Suspect]
     Active Substance: VALPROIC ACID
  4. ATOMOXETINE [Suspect]
     Active Substance: ATOMOXETINE

REACTIONS (2)
  - Dystonia [Unknown]
  - Dyskinesia [Unknown]
